FAERS Safety Report 14490887 (Version 2)
Quarter: 2018Q1

REPORT INFORMATION
  Report Type: Spontaneous
  Country: US (occurrence: US)
  Receive Date: 20180206
  Receipt Date: 20180308
  Transmission Date: 20180509
  Serious: No
  Sender: FDA-Public Use
  Company Number: US-PFIZER INC-2018046489

PATIENT
  Age: 87 Year
  Sex: Female
  Weight: 57 kg

DRUGS (4)
  1. IBRANCE [Suspect]
     Active Substance: PALBOCICLIB
     Indication: BREAST CANCER METASTATIC
     Dosage: 100 MG, CYCLIC (21 DAYS AND THEN OFF FOR 7 DAYS)
     Route: 048
     Dates: start: 20160601, end: 20180104
  2. SYMBICORT [Concomitant]
     Active Substance: BUDESONIDE\FORMOTEROL FUMARATE DIHYDRATE
     Indication: ASTHMA
     Dosage: UNK, 2X/DAY (160/4.5 ALLOWED TO TAKE 1 INHALATION TWICE A DAY)
  3. XGEVA [Concomitant]
     Active Substance: DENOSUMAB
     Indication: NEOPLASM PROGRESSION
     Dosage: UNK, MONTHLY (SHOT ONCE A MONTH)
     Dates: start: 20160601
  4. LETROZOLE. [Concomitant]
     Active Substance: LETROZOLE
     Dosage: 2.5 MG, 1X/DAY
     Route: 048
     Dates: start: 20160601

REACTIONS (4)
  - Dysphonia [Unknown]
  - Asthenia [Not Recovered/Not Resolved]
  - Cough [Not Recovered/Not Resolved]
  - Dyspnoea [Not Recovered/Not Resolved]

NARRATIVE: CASE EVENT DATE: 201802
